FAERS Safety Report 7183929-3 (Version None)
Quarter: 2010Q4

REPORT INFORMATION
  Report Type: 
  Country: None (occurrence: None)
  Receive Date: 20101222
  Receipt Date: 20101213
  Transmission Date: 20110411
  Serious: Yes (Other)
  Sender: FDA-Public Use
  Company Number: AU-ROCHE-748207

PATIENT
  Sex: Male

DRUGS (5)
  1. AVASTIN [Suspect]
     Route: 065
     Dates: start: 20100801
  2. FOLINIC ACID [Concomitant]
  3. FLUOROURACIL [Concomitant]
  4. OXALIPLATIN [Concomitant]
  5. IRINOTECAN HCL [Concomitant]

REACTIONS (2)
  - DISEASE PROGRESSION [None]
  - INTESTINAL PERFORATION [None]
